FAERS Safety Report 10677379 (Version 1)
Quarter: 2014Q4

REPORT INFORMATION
  Report Type: Report from Study
  Country: KR (occurrence: KR)
  Receive Date: 20141227
  Receipt Date: 20141227
  Transmission Date: 20150529
  Serious: Yes (Hospitalization)
  Sender: FDA-Public Use
  Company Number: KR-AMGEN-KORCT2014101044

PATIENT
  Age: 41 Year
  Sex: Female
  Weight: 58 kg

DRUGS (9)
  1. DOCETAXEL. [Concomitant]
     Active Substance: DOCETAXEL
     Dosage: 121.5 MG, 1X/3WEEKS
     Route: 042
     Dates: start: 20140811, end: 20140902
  2. DOXORUBICIN [Concomitant]
     Active Substance: DOXORUBICIN
     Dosage: 81 MG, 1X/3WEEKS
     Route: 042
     Dates: start: 20140811, end: 20140902
  3. GABAPENTIN. [Concomitant]
     Active Substance: GABAPENTIN
     Indication: NEUROPATHY PERIPHERAL
     Dosage: 300 MG, UNK
     Route: 048
     Dates: start: 20140719, end: 20140909
  4. DOCETAXEL. [Concomitant]
     Active Substance: DOCETAXEL
     Dosage: 122.25 MG, 1X/3WEEKS
     Route: 042
     Dates: start: 20140719, end: 20140719
  5. DOXORUBICIN [Concomitant]
     Active Substance: DOXORUBICIN
     Dosage: 81.5 MG, 1X/3WEEKS
     Route: 042
     Dates: start: 20140719, end: 20140719
  6. PEGFILGRASTIM [Suspect]
     Active Substance: PEGFILGRASTIM
     Indication: FEBRILE NEUTROPENIA
     Dosage: 6 MG, 1X/3WEEKS
     Route: 058
     Dates: start: 20140720, end: 20140903
  7. CYCLOPHOSPHAMIDE. [Concomitant]
     Active Substance: CYCLOPHOSPHAMIDE
     Dosage: 815 MG, 1X/3WEEKS
     Route: 042
     Dates: start: 20140719, end: 20140719
  8. CYCLOPHOSPHAMIDE. [Concomitant]
     Active Substance: CYCLOPHOSPHAMIDE
     Dosage: 810 MG, 1X/3WEEKS
     Route: 042
     Dates: start: 20140811, end: 20140902
  9. SANCUSO [Concomitant]
     Active Substance: GRANISETRON
     Indication: ANTIEMETIC SUPPORTIVE CARE
     Dosage: 34.3 MG, UNK
     Route: 062
     Dates: start: 20140718, end: 20140909

REACTIONS (1)
  - Neutropenia [Recovered/Resolved]

NARRATIVE: CASE EVENT DATE: 20140909
